FAERS Safety Report 18593821 (Version 1)
Quarter: 2020Q4

REPORT INFORMATION
  Report Type: Spontaneous
  Country: ES (occurrence: ES)
  Receive Date: 20201209
  Receipt Date: 20201209
  Transmission Date: 20210114
  Serious: Yes (Hospitalization)
  Sender: FDA-Public Use
  Company Number: ES-TEVA-2020-ES-1855600

PATIENT
  Age: 63 Year
  Sex: Female

DRUGS (3)
  1. PEMBROLIZUMAB (9069A) [Concomitant]
     Dates: start: 202006
  2. PEMETREXED (2944A) [Concomitant]
     Active Substance: PEMETREXED
     Dates: start: 202006
  3. CARBOPLATINO (2323A) [Suspect]
     Active Substance: CARBOPLATIN
     Dates: start: 202006, end: 2020

REACTIONS (1)
  - Bicytopenia [Not Recovered/Not Resolved]

NARRATIVE: CASE EVENT DATE: 202007
